FAERS Safety Report 23606869 (Version 2)
Quarter: 2024Q2

REPORT INFORMATION
  Report Type: Spontaneous
  Country: LU (occurrence: LU)
  Receive Date: 20240307
  Receipt Date: 20240409
  Transmission Date: 20240716
  Serious: Yes (Hospitalization)
  Sender: FDA-Public Use
  Company Number: None

PATIENT
  Age: 71 Year
  Sex: Male
  Weight: 88 kg

DRUGS (21)
  1. CARBOPLATIN [Suspect]
     Active Substance: CARBOPLATIN
     Indication: Lung neoplasm malignant
     Dosage: 5TH COURSE OF CHEMOTHERAPY
     Route: 042
     Dates: start: 20240117, end: 20240117
  2. CARBOPLATIN [Suspect]
     Active Substance: CARBOPLATIN
     Dosage: 6TH COURSE OF CHEMOTHERAPY
     Route: 042
     Dates: start: 20240124, end: 20240124
  3. PACLITAXEL [Suspect]
     Active Substance: PACLITAXEL
     Indication: Lung neoplasm malignant
     Dosage: 5TH COURSE OF CHEMOTHERAPY?PACLITAXEL TEVA
     Route: 042
     Dates: start: 20240117, end: 20240117
  4. PACLITAXEL [Suspect]
     Active Substance: PACLITAXEL
     Dosage: 6TH COURSE OF CHEMOTHERAPY?PACLITAXEL TEVA
     Route: 042
     Dates: start: 20240124, end: 20240124
  5. DEXAMETHASONE [Concomitant]
     Active Substance: DEXAMETHASONE
     Indication: Premedication
     Route: 042
     Dates: start: 20240124, end: 20240124
  6. DEXAMETHASONE [Concomitant]
     Active Substance: DEXAMETHASONE
     Route: 042
     Dates: start: 20240117, end: 20240117
  7. ONDANSETRON [Concomitant]
     Active Substance: ONDANSETRON
     Indication: Premedication
     Route: 042
     Dates: start: 20240124, end: 20240124
  8. ONDANSETRON [Concomitant]
     Active Substance: ONDANSETRON
     Route: 042
     Dates: start: 20240117, end: 20240117
  9. CLEMASTINE FUMARATE [Concomitant]
     Active Substance: CLEMASTINE FUMARATE
     Indication: Premedication
     Route: 042
     Dates: start: 20240117, end: 20240117
  10. CLEMASTINE FUMARATE [Concomitant]
     Active Substance: CLEMASTINE FUMARATE
     Route: 042
     Dates: start: 20240124, end: 20240124
  11. CIMETIDINE [Concomitant]
     Active Substance: CIMETIDINE
     Indication: Premedication
     Route: 048
     Dates: start: 20240124, end: 20240124
  12. CIMETIDINE [Concomitant]
     Active Substance: CIMETIDINE
     Route: 048
     Dates: start: 20240117, end: 20240117
  13. VENTOLINE 100 MICROGRAMS/DOSE [Concomitant]
     Indication: Chronic obstructive pulmonary disease
     Route: 055
  14. GLUCOPHAGE [Concomitant]
     Active Substance: METFORMIN HYDROCHLORIDE
     Indication: Diabetes mellitus
     Route: 048
  15. Asaflow 160 MG [Concomitant]
     Indication: Chronic obstructive pulmonary disease
     Route: 048
  16. Trimbow 87 MICROGRAMS/5 MICROGRAMS/9 MICROGRAMS [Concomitant]
     Indication: Chronic obstructive pulmonary disease
     Route: 055
  17. LYSOMUCIL 600MG [Concomitant]
     Indication: Chronic obstructive pulmonary disease
     Route: 048
  18. ATORVASTATIN CALCIUM\EZETIMIBE [Concomitant]
     Active Substance: ATORVASTATIN CALCIUM\EZETIMIBE
     Indication: Cardiovascular event prophylaxis
     Route: 048
  19. JENTADUETO [Concomitant]
     Active Substance: LINAGLIPTIN\METFORMIN HYDROCHLORIDE
     Indication: Diabetes mellitus
     Route: 048
  20. TEMESTA 2.5 MG [Concomitant]
     Indication: Product used for unknown indication
     Route: 048
  21. SERETIDE DISKUS 500 MICROGRAMS/50 MICROGRAMS [Concomitant]
     Indication: Chronic obstructive pulmonary disease
     Route: 055

REACTIONS (4)
  - Syncope [Recovered/Resolved]
  - Nervousness [Recovered/Resolved]
  - Paraesthesia [Recovered/Resolved]
  - Cough [Recovered/Resolved]

NARRATIVE: CASE EVENT DATE: 20240117
